FAERS Safety Report 4551364-X (Version None)
Quarter: 2005Q1

REPORT INFORMATION
  Report Type: 
  Country: None (occurrence: None)
  Receive Date: 20050110
  Receipt Date: 20041227
  Transmission Date: 20050727
  Serious: Yes (Hospitalization)
  Sender: FDA-Public Use
  Company Number: 211434

PATIENT
  Age: 56 Year
  Sex: Male

DRUGS (7)
  1. RITUXIMAB              (RITUXIMAB) [Suspect]
     Indication: LYMPHOMA
     Dosage: INTRAVENOUS
     Route: 042
  2. FLUDARABINE PHOSPHATE [Concomitant]
  3. MITOXANTRONE [Concomitant]
  4. PIRARUBICIN          (PIRARUBICIN) [Concomitant]
  5. DEXAMETHASONE [Concomitant]
  6. CLADRIBINE [Concomitant]
  7. CEFEPIME (CEFEPIME) [Concomitant]

REACTIONS (1)
  - PNEUMOCYSTIS JIROVECI PNEUMONIA [None]
